FAERS Safety Report 10226785 (Version 1)
Quarter: 2014Q2

REPORT INFORMATION
  Report Type: Spontaneous
  Country: GB (occurrence: GB)
  Receive Date: 20140610
  Receipt Date: 20140610
  Transmission Date: 20141212
  Serious: Yes (Hospitalization, Disabling)
  Sender: FDA-Public Use
  Company Number: GB-ACCORD-024130

PATIENT
  Age: 72 Year
  Sex: Female

DRUGS (6)
  1. SIMVASTATIN [Suspect]
     Indication: ACUTE MYOCARDIAL INFARCTION
     Route: 048
     Dates: start: 20140501, end: 20140513
  2. RAMIPRIL [Concomitant]
  3. ACETYLSALICYLIC ACID [Concomitant]
  4. METFORMIN [Concomitant]
  5. BISOPROLOL [Concomitant]
  6. PRASUGREL [Concomitant]

REACTIONS (6)
  - Liver function test abnormal [Recovered/Resolved]
  - Renal failure acute [Recovered/Resolved]
  - Drug prescribing error [Unknown]
  - Myalgia [Recovered/Resolved]
  - Mobility decreased [Recovered/Resolved]
  - Myopathy [Recovered/Resolved]
